FAERS Safety Report 13766406 (Version 1)
Quarter: 2017Q3

REPORT INFORMATION
  Report Type: Spontaneous
  Country: US (occurrence: US)
  Receive Date: 20170719
  Receipt Date: 20170719
  Transmission Date: 20171127
  Serious: Yes (Death, Hospitalization, Disabling, Other)
  Sender: FDA-Public Use
  Company Number: None

PATIENT
  Age: 75 Year
  Sex: Male
  Weight: 129.39 kg

DRUGS (1)
  1. FENTANYL. [Suspect]
     Active Substance: FENTANYL
     Indication: PARKINSONISM

REACTIONS (5)
  - Pain [None]
  - Dyspnoea [None]
  - Aphasia [None]
  - Product communication issue [None]
  - Crying [None]

NARRATIVE: CASE EVENT DATE: 20150414
